FAERS Safety Report 20045652 (Version 1)
Quarter: 2021Q4

REPORT INFORMATION
  Report Type: Spontaneous
  Country: TH (occurrence: TH)
  Receive Date: 20211108
  Receipt Date: 20211108
  Transmission Date: 20220303
  Serious: Yes (Hospitalization)
  Sender: FDA-Public Use
  Company Number: TH-PRINSTON PHARMACEUTICAL INC.-2021PRN00398

PATIENT
  Age: 61 Year
  Sex: Female

DRUGS (4)
  1. ROPINIROLE [Suspect]
     Active Substance: ROPINIROLE
     Indication: Parkinson^s disease
     Dosage: 4 MG, 1X/DAY (UP-TITRATED TO THIS DOSE)
     Route: 065
  2. BENSERAZIDE\LEVODOPA [Suspect]
     Active Substance: BENSERAZIDE\LEVODOPA
     Indication: Parkinson^s disease
     Dosage: 875 MG, 1X/DAY
     Route: 065
  3. BENSERAZIDE\LEVODOPA [Suspect]
     Active Substance: BENSERAZIDE\LEVODOPA
     Dosage: 500 MG, 1X/DAY
     Route: 065
  4. ENTACAPONE [Concomitant]
     Active Substance: ENTACAPONE
     Dosage: 800 MG, 1X/DAY
     Route: 065

REACTIONS (1)
  - Parkinsonism hyperpyrexia syndrome [Recovering/Resolving]
